FAERS Safety Report 15391804 (Version 1)
Quarter: 2018Q3

REPORT INFORMATION
  Report Type: Spontaneous
  Country: US (occurrence: US)
  Receive Date: 20180910
  Receipt Date: 20180910
  Transmission Date: 20181010
  Serious: Yes (Other)
  Sender: FDA-Public Use
  Company Number: None

PATIENT
  Age: 77 Year
  Sex: Male

DRUGS (2)
  1. REPATHA [Suspect]
     Active Substance: EVOLOCUMAB
     Indication: HYPERLIPIDAEMIA
     Route: 058
     Dates: start: 20180903, end: 20180910
  2. REPATHA [Concomitant]
     Active Substance: EVOLOCUMAB
     Dates: start: 20180903, end: 20180910

REACTIONS (2)
  - Muscular weakness [None]
  - Gait disturbance [None]

NARRATIVE: CASE EVENT DATE: 20180909
